FAERS Safety Report 10365546 (Version 1)
Quarter: 2014Q1

REPORT INFORMATION
  Report Type: Spontaneous
  Country: US (occurrence: None)
  Receive Date: 20140306
  Receipt Date: 20140306
  Transmission Date: 20141002
  Serious: Yes (Other)
  Sender: FDA-Public Use
  Company Number: 163-21880-13093773

PATIENT
  Age: 59 Year
  Sex: Male

DRUGS (8)
  1. REVLIMID [Suspect]
     Indication: PLASMA CELL MYELOMA
     Route: 048
     Dates: start: 20120526
  2. PRILOSEC (OMEPRAZOLE) [Concomitant]
  3. OXYCODONE HCL (OXYCODONE HYDROCHLORIDE) [Concomitant]
  4. MULTIVITAMINS [Concomitant]
  5. FOLIC ACID [Concomitant]
  6. VITAMIN B-6 (PYRIDOXINE HYDROCHLORIDE) [Concomitant]
  7. ASPIRIN (ACETYLSALICYLIC ACID) [Concomitant]
  8. DEXAMETHASONE [Concomitant]

REACTIONS (1)
  - Brain abscess [None]
